FAERS Safety Report 10641624 (Version 2)
Quarter: 2014Q4

REPORT INFORMATION
  Report Type: Report from Study
  Country: US (occurrence: US)
  Receive Date: 20141209
  Receipt Date: 20141209
  Transmission Date: 20150529
  Serious: Yes (Hospitalization)
  Sender: FDA-Public Use
  Company Number: US-ABBVIE-13P-163-1054917-00

PATIENT
  Age: 57 Year
  Sex: Female

DRUGS (7)
  1. LIALDA [Concomitant]
     Active Substance: MESALAMINE
     Indication: COLITIS ULCERATIVE
  2. HUMIRA [Suspect]
     Active Substance: ADALIMUMAB
     Indication: COLITIS ULCERATIVE
     Route: 065
     Dates: start: 201212, end: 201405
  3. 6-MP [Suspect]
     Active Substance: MERCAPTOPURINE
     Indication: RECTAL HAEMORRHAGE
     Dosage: LOW DOSE
     Route: 065
  4. STRONG HAIR AND NAIL BIOTIN SUPPLEMENT [Concomitant]
     Indication: ALOPECIA
  5. 6-MP [Suspect]
     Active Substance: MERCAPTOPURINE
     Indication: COLITIS ULCERATIVE
     Dosage: 50 MG, 3 TABS DAILY
     Route: 065
     Dates: end: 201302
  6. CANASA [Concomitant]
     Active Substance: MESALAMINE
     Indication: COLITIS ULCERATIVE
  7. MULTIVITAMIN [Concomitant]
     Active Substance: VITAMINS
     Indication: VITAMIN SUPPLEMENTATION

REACTIONS (20)
  - Tongue discolouration [Unknown]
  - Wound [Recovered/Resolved]
  - Wound [Recovered/Resolved]
  - Contusion [Recovered/Resolved]
  - Ocular icterus [Unknown]
  - Dry skin [Unknown]
  - Poor quality sleep [Unknown]
  - Lip blister [Unknown]
  - Skin fissures [Unknown]
  - Hypoaesthesia [Unknown]
  - Glossodynia [Recovered/Resolved]
  - Impetigo [Recovered/Resolved]
  - Sepsis [Recovered/Resolved]
  - Skin lesion [Recovered/Resolved]
  - Stomatitis [Recovered/Resolved]
  - Wound complication [Recovered/Resolved]
  - Tongue disorder [Unknown]
  - Pain in extremity [Unknown]
  - Nervousness [Unknown]
  - Rectal haemorrhage [Recovering/Resolving]

NARRATIVE: CASE EVENT DATE: 201301
